FAERS Safety Report 25094819 (Version 1)
Quarter: 2025Q1

REPORT INFORMATION
  Report Type: Spontaneous
  Country: US (occurrence: None)
  Receive Date: 20250318
  Receipt Date: 20250318
  Transmission Date: 20250409
  Serious: Yes (Other)
  Sender: FDA-CTU
  Company Number: None

PATIENT
  Age: 59 Year
  Sex: Female

DRUGS (1)
  1. ROSUVASTATIN [Suspect]
     Active Substance: ROSUVASTATIN

REACTIONS (4)
  - Flushing [None]
  - Ephelides [None]
  - Erythema [None]
  - Feeling hot [None]

NARRATIVE: CASE EVENT DATE: 20250316
